FAERS Safety Report 21045858 (Version 1)
Quarter: 2022Q3

REPORT INFORMATION
  Report Type: Spontaneous
  Country: BE (occurrence: BE)
  Receive Date: 20220706
  Receipt Date: 20220706
  Transmission Date: 20221026
  Serious: Yes (Other)
  Sender: FDA-Public Use
  Company Number: BE-SUN PHARMACEUTICAL INDUSTRIES LTD-2022R1-343238

PATIENT
  Sex: Female
  Weight: 66 kg

DRUGS (3)
  1. CETIRIZINE HYDROCHLORIDE [Suspect]
     Active Substance: CETIRIZINE HYDROCHLORIDE
     Indication: American trypanosomiasis
     Dosage: 10 MILLIGRAM, DAILY
     Route: 065
  2. PREDNISOLONE [Suspect]
     Active Substance: PREDNISOLONE
     Indication: American trypanosomiasis
     Dosage: UNK,8MG
     Route: 065
  3. BENZNIDAZOLE [Suspect]
     Active Substance: BENZNIDAZOLE
     Indication: American trypanosomiasis
     Dosage: 4.5 MILLIGRAM/KILOGRAM
     Route: 065

REACTIONS (1)
  - Disease recurrence [Unknown]
